FAERS Safety Report 24545412 (Version 1)
Quarter: 2024Q4

REPORT INFORMATION
  Report Type: Spontaneous
  Country: KR (occurrence: KR)
  Receive Date: 20241024
  Receipt Date: 20241024
  Transmission Date: 20250115
  Serious: Yes (Other)
  Sender: GILEAD
  Company Number: KR-GILEAD-2024-0691879

PATIENT
  Sex: Female

DRUGS (2)
  1. BIKTARVY [Suspect]
     Active Substance: BICTEGRAVIR SODIUM\EMTRICITABINE\TENOFOVIR ALAFENAMIDE FUMARATE
     Indication: Product used for unknown indication
     Route: 065
  2. ESTROGENS [Concomitant]
     Active Substance: ESTROGENS

REACTIONS (5)
  - Metabolic dysfunction-associated steatohepatitis [Unknown]
  - Hepatic steatosis [Unknown]
  - Viraemia [Unknown]
  - Weight increased [Unknown]
  - Hepatic enzyme increased [Unknown]
